FAERS Safety Report 14111890 (Version 1)
Quarter: 2017Q4

REPORT INFORMATION
  Report Type: Spontaneous
  Country: US (occurrence: US)
  Receive Date: 20171020
  Receipt Date: 20171020
  Transmission Date: 20180321
  Serious: Yes (Life-Threatening)
  Sender: FDA-Public Use
  Company Number: None

PATIENT
  Age: 41 Year
  Sex: Female
  Weight: 51.75 kg

DRUGS (1)
  1. DYSPORT [Suspect]
     Active Substance: ABOBOTULINUMTOXINA
     Indication: SKIN WRINKLING
     Route: 030
     Dates: start: 20170919, end: 20171019

REACTIONS (8)
  - Chills [None]
  - Photophobia [None]
  - Hyperacusis [None]
  - Anxiety [None]
  - Thinking abnormal [None]
  - Headache [None]
  - Insomnia [None]
  - Memory impairment [None]

NARRATIVE: CASE EVENT DATE: 20171019
